FAERS Safety Report 7600045-4 (Version None)
Quarter: 2011Q3

REPORT INFORMATION
  Report Type: 
  Country: None (occurrence: None)
  Receive Date: 20110711
  Receipt Date: 20110630
  Transmission Date: 20111222
  Serious: Yes (Other)
  Sender: FDA-Public Use
  Company Number: US-BAYER-201038871NA

PATIENT
  Age: 33 Year
  Sex: Female
  Weight: 95.238 kg

DRUGS (11)
  1. LORTAB [Concomitant]
  2. YAZ [Suspect]
  3. YAZ [Suspect]
     Indication: PREMENSTRUAL SYNDROME
  4. BENTYL [Concomitant]
  5. ANTIBIOTICS [Concomitant]
     Dosage: UNK
     Dates: start: 20081101
  6. PHENERGAN HCL [Concomitant]
  7. YAZ [Suspect]
     Indication: ORAL CONTRACEPTION
     Dosage: UNK UNK, QD
     Route: 048
     Dates: start: 20000101, end: 20080101
  8. YASMIN [Suspect]
  9. IBUPROFEN [Concomitant]
     Indication: PAIN
     Dosage: UNK
     Dates: start: 20000101
  10. YASMIN [Suspect]
     Indication: ORAL CONTRACEPTION
     Dosage: UNK UNK, QD
     Route: 048
     Dates: start: 20000101, end: 20080101
  11. YASMIN [Suspect]
     Indication: PREMENSTRUAL SYNDROME

REACTIONS (3)
  - CHOLELITHIASIS [None]
  - CHOLECYSTITIS CHRONIC [None]
  - GALLBLADDER DISORDER [None]
